FAERS Safety Report 12507686 (Version 1)
Quarter: 2016Q2

REPORT INFORMATION
  Report Type: Spontaneous
  Country: DE (occurrence: DE)
  Receive Date: 20160629
  Receipt Date: 20160629
  Transmission Date: 20160815
  Serious: Yes (Other)
  Sender: FDA-Public Use
  Company Number: DE-AUROBINDO-AUR-APL-2016-08433

PATIENT
  Age: 33 Year
  Sex: Female
  Weight: 80 kg

DRUGS (8)
  1. SPIRONOLACTONE. [Suspect]
     Active Substance: SPIRONOLACTONE
     Indication: PRIMARY HYPERALDOSTERONISM
     Dosage: 50 MG, ONCE A DAY
     Route: 048
     Dates: start: 20150421, end: 20151214
  2. AMLODIPINE [Concomitant]
     Active Substance: AMLODIPINE BESYLATE
     Indication: PRIMARY HYPERALDOSTERONISM
     Dosage: 5 MG, TWO TIMES A DAY
     Route: 048
     Dates: start: 20150421, end: 20150528
  3. METOPROLOL 100MG [Suspect]
     Active Substance: METOPROLOL
     Indication: PRIMARY HYPERALDOSTERONISM
     Dosage: 100 MG, TWO TIMES A DAY
     Route: 048
     Dates: start: 20150421, end: 20151214
  4. METHYLDOPA. [Suspect]
     Active Substance: METHYLDOPA
     Indication: HYPERTENSIVE HEART DISEASE
     Dosage: 500 MG, 3 TIMES A DAY
     Route: 048
     Dates: start: 20150525, end: 20151214
  5. RAMIPRIL. [Concomitant]
     Active Substance: RAMIPRIL
     Indication: HYPERTENSIVE HEART DISEASE
     Dosage: 1.25 MG, DAILY
     Route: 048
     Dates: start: 20150421, end: 20150526
  6. BETAMETHASONE. [Concomitant]
     Active Substance: BETAMETHASONE
     Indication: MATERNAL THERAPY TO ENHANCE FOETAL LUNG MATURITY
     Dosage: UNK
     Route: 048
     Dates: start: 20151209
  7. TORASEMIDE [Concomitant]
     Active Substance: TORSEMIDE
     Indication: HYPERTENSIVE HEART DISEASE
     Dosage: 2.5 MG, ONCE A DAY
     Route: 048
     Dates: start: 20150421, end: 20150526
  8. HYDROCHLOROTHIAZIDE. [Concomitant]
     Active Substance: HYDROCHLOROTHIAZIDE
     Indication: HYPERTENSIVE HEART DISEASE
     Dosage: UNK
     Route: 048
     Dates: start: 20150421, end: 20150525

REACTIONS (2)
  - Exposure during pregnancy [Unknown]
  - Gestational diabetes [Unknown]
